FAERS Safety Report 25021812 (Version 4)
Quarter: 2025Q2

REPORT INFORMATION
  Report Type: Spontaneous
  Country: US (occurrence: US)
  Receive Date: 20250228
  Receipt Date: 20250403
  Transmission Date: 20250717
  Serious: No
  Sender: ABBVIE
  Company Number: US-ABBVIE-6150388

PATIENT
  Age: 37 Year
  Sex: Female
  Weight: 75 kg

DRUGS (6)
  1. LILETTA [Suspect]
     Active Substance: LEVONORGESTREL
     Indication: Menstrual cycle management
     Route: 015
     Dates: start: 20250122, end: 20250224
  2. LILETTA [Suspect]
     Active Substance: LEVONORGESTREL
     Indication: Contraception
  3. VITAMIN D [Concomitant]
     Active Substance: VITAMIN D NOS
     Indication: Vitamin supplementation
  4. IRON [Concomitant]
     Active Substance: IRON
     Indication: Anaemia
  5. MAGNESIUM [Concomitant]
     Active Substance: MAGNESIUM
     Indication: Mineral supplementation
  6. IBUPROFEN [Concomitant]
     Active Substance: IBUPROFEN
     Indication: Menstrual cycle management

REACTIONS (3)
  - Device expulsion [Not Recovered/Not Resolved]
  - Vaginal haemorrhage [Recovered/Resolved]
  - Heavy menstrual bleeding [Recovering/Resolving]

NARRATIVE: CASE EVENT DATE: 20250101
